FAERS Safety Report 21967006 (Version 1)
Quarter: 2023Q1

REPORT INFORMATION
  Report Type: Spontaneous
  Country: US (occurrence: US)
  Receive Date: 20230208
  Receipt Date: 20230208
  Transmission Date: 20230417
  Serious: Yes (Hospitalization, Other)
  Sender: FDA-Public Use
  Company Number: US-HALEON-USCH2023GSK005420

PATIENT
  Age: 76 Year
  Sex: Male

DRUGS (5)
  1. TUMS [Suspect]
     Active Substance: CALCIUM CARBONATE
     Indication: Gastrooesophageal reflux disease
     Dosage: UNK, QD (8-9 TABLETS OF 1000 MG DAILY)
  2. GLIPIZIDE [Concomitant]
     Active Substance: GLIPIZIDE
     Indication: Diabetes mellitus
     Dosage: UNK
  3. AMLODIPINE [Concomitant]
     Active Substance: AMLODIPINE BESYLATE
     Indication: Hypertension
     Dosage: UNK
  4. OLMESARTAN [Concomitant]
     Active Substance: OLMESARTAN
     Indication: Hypertension
     Dosage: UNK
  5. AZACITIDINE [Concomitant]
     Active Substance: AZACITIDINE
     Indication: Myelodysplastic syndrome
     Dosage: UNK

REACTIONS (10)
  - Mental impairment [Unknown]
  - Aspiration [Unknown]
  - Encephalopathy [Unknown]
  - Milk-alkali syndrome [Unknown]
  - Hypercalcaemia [Recovered/Resolved]
  - Lethargy [Unknown]
  - Somnolence [Unknown]
  - Dry mouth [Unknown]
  - Sinus tachycardia [Unknown]
  - Extra dose administered [Unknown]
